FAERS Safety Report 5244173-X (Version None)
Quarter: 2007Q1

REPORT INFORMATION
  Report Type: 
  Country: None (occurrence: None)
  Receive Date: 20070216
  Receipt Date: 20070202
  Transmission Date: 20070707
  Serious: Yes (Hospitalization)
  Sender: FDA-Public Use
  Company Number: 2005JP001088

PATIENT
  Age: 13 Year
  Sex: Male

DRUGS (7)
  1. PROTOPIC [Suspect]
     Dosage: 0.03%, TOPICAL
     Route: 061
  2. VOALLA (DEXAMETHASONE VALERATE) OINTMENT [Concomitant]
  3. WHITE PETROLEUM (PETROLATUM) OINTMENT [Concomitant]
  4. HIRUDOID /OLD FORM/(HEPARINOID) [Concomitant]
  5. ALLEGRA (FEXOFENADINE HYDROCHLORIDE) TABLET [Concomitant]
  6. LIDOMEX (PREDNISOLONE VALEROACETATE) CREAM [Concomitant]
  7. DIFLUPREDNATE (DIFLUPREDNATE) CREAM [Concomitant]

REACTIONS (1)
  - KAPOSI'S VARICELLIFORM ERUPTION [None]
